FAERS Safety Report 17817209 (Version 1)
Quarter: 2020Q2

REPORT INFORMATION
  Report Type: Other
  Country: FR (occurrence: FR)
  Receive Date: 20200522
  Receipt Date: 20200522
  Transmission Date: 20200714
  Serious: Yes (Hospitalization)
  Sender: FDA-Public Use
  Company Number: FR-CADILA HEALTHCARE LIMITED-FR-ZYDUS-051223

PATIENT

DRUGS (17)
  1. KARDEGIC [Concomitant]
     Active Substance: ASPIRIN DL-LYSINE
     Indication: MESENTERIC ARTERY STENOSIS
     Dosage: 160 MG, 1X/DAY
     Route: 048
     Dates: start: 20120307
  2. ENZALUTAMIDE [Suspect]
     Active Substance: ENZALUTAMIDE
     Indication: PROSTATE CANCER
     Dosage: 160 MG, 1X/DAY
     Route: 048
     Dates: start: 20120320, end: 20191003
  3. MIANSERINE [MIANSERIN HYDROCHLORIDE] [Suspect]
     Active Substance: MIANSERIN HYDROCHLORIDE
     Indication: PRODUCT USED FOR UNKNOWN INDICATION
     Dosage: UNK
     Route: 065
  4. CRESTOR [Concomitant]
     Active Substance: ROSUVASTATIN CALCIUM
     Indication: HYPERCHOLESTEROLAEMIA
     Dosage: 5 MILLIGRAM, QD (5 MG, 1X/DAY)
     Route: 048
     Dates: start: 1980
  5. SPASFON [PHLOROGLUCINOL] [Concomitant]
     Active Substance: PHLOROGLUCINOL
     Indication: DIVERTICULUM
     Dosage: 80 MG, INTERMITTENT
     Route: 048
     Dates: start: 201202
  6. SERTRALINE [Suspect]
     Active Substance: SERTRALINE HYDROCHLORIDE
     Indication: PRODUCT USED FOR UNKNOWN INDICATION
     Dosage: UNK
     Route: 048
  7. DEPAMIDE [Concomitant]
     Active Substance: VALPROMIDE
     Indication: DEPRESSION
     Dosage: 900 MILLIGRAM, QD (300 MG, 3X/DAY)
     Route: 048
     Dates: start: 201702
  8. IPERTEN [Concomitant]
     Active Substance: MANIDIPINE
     Indication: HYPERTENSION
     Dosage: 10 MILLIGRAM, QD (10 MG, 1X/DAY)
     Route: 048
     Dates: start: 20170414
  9. ATHYMIL [Concomitant]
     Active Substance: MIANSERIN HYDROCHLORIDE
     Indication: ANXIETY
     Dosage: 30 MILLIGRAM, QD (30 MG, 1X/DAY)
     Route: 048
     Dates: start: 20170414
  10. ZOLOFT [Concomitant]
     Active Substance: SERTRALINE HYDROCHLORIDE
     Indication: ANXIETY
     Dosage: 50 MG, 1X/DAY
     Route: 048
     Dates: start: 20181024
  11. MOVICOL [Concomitant]
     Active Substance: POLYETHYLENE GLYCOL 3350\POTASSIUM CHLORIDE\SODIUM BICARBONATE\SODIUM CHLORIDE
     Indication: CONSTIPATION
     Dosage: 2 DOSAGE FORM, TOTAL (2 SACHET, ONCE)
     Route: 048
     Dates: start: 201202
  12. EFFEXOR [Concomitant]
     Active Substance: VENLAFAXINE HYDROCHLORIDE
     Indication: ANXIETY
     Dosage: 37.5 MILLIGRAM, TOTAL (EFFEXOR LP, 37.5 MG, SINGLE)
     Route: 048
     Dates: start: 2012
  13. DOLIPRANE [Concomitant]
     Active Substance: ACETAMINOPHEN
     Indication: PAIN
     Dosage: 3000 MG, 3X/DAY
     Route: 048
     Dates: start: 201602
  14. IMOVANE [Concomitant]
     Active Substance: ZOPICLONE
     Indication: INSOMNIA
     Dosage: 3.75 MILLIGRAM, QD (3.75 MG, 1X/DAY)
     Route: 048
     Dates: start: 20170510
  15. ESOMEPRAZOLE EG [Concomitant]
     Active Substance: ESOMEPRAZOLE
     Indication: ABDOMINAL PAIN UPPER
     Dosage: 40 MILLIGRAM, QD (40 MG, 1X/DAY)
     Route: 048
     Dates: start: 20120201
  16. METFORMINE [METFORMIN] [Concomitant]
     Active Substance: METFORMIN HYDROCHLORIDE
     Indication: DIABETES MELLITUS
     Dosage: 850 MILLIGRAM, QD (850 MG, 1X/DAY)
     Route: 048
     Dates: start: 1980
  17. SERESTA [Suspect]
     Active Substance: OXAZEPAM
     Indication: ANXIETY
     Dosage: 150 MG, 3X/DAY
     Route: 048
     Dates: start: 2016

REACTIONS (1)
  - Fall [Recovered/Resolved]

NARRATIVE: CASE EVENT DATE: 20190930
